FAERS Safety Report 22678208 (Version 6)
Quarter: 2024Q3

REPORT INFORMATION
  Report Type: Spontaneous
  Country: US (occurrence: US)
  Receive Date: 20230706
  Receipt Date: 20240819
  Transmission Date: 20241017
  Serious: Yes (Hospitalization)
  Sender: PFIZER
  Company Number: US-PFIZER INC-US-GBT-021537

PATIENT
  Age: 13 Year
  Sex: Male

DRUGS (8)
  1. OXBRYTA [Suspect]
     Active Substance: VOXELOTOR
     Indication: Sickle cell disease
     Dosage: 1000 MG (2 PILLS), DAILY
  2. OXBRYTA [Suspect]
     Active Substance: VOXELOTOR
     Dosage: UNK (DOSE REDUCED)
  3. OXBRYTA [Suspect]
     Active Substance: VOXELOTOR
     Dosage: 1000 MG, 1X/DAY (ONCE DAILY)
  4. OXBRYTA [Suspect]
     Active Substance: VOXELOTOR
     Dosage: 1500 MG, 1X/DAY (3 TABLETS ONCE DAILY)
     Route: 048
     Dates: start: 20210701
  5. OXBRYTA [Suspect]
     Active Substance: VOXELOTOR
     Dosage: 1500 MG (3 TABLETS OF 500 MG), 1X/DAY
     Route: 048
     Dates: start: 20210702
  6. OXBRYTA [Suspect]
     Active Substance: VOXELOTOR
     Dosage: 500MG TABS TAKE 3 TABS BY MOUTH ONCE DAILY
     Route: 048
     Dates: start: 20210702
  7. OXBRYTA [Suspect]
     Active Substance: VOXELOTOR
     Dosage: 500 MG TABS TAKE 3 BY MOUTH ONCE DAILY
     Route: 048
     Dates: start: 20240701
  8. HYDROXYUREA [Concomitant]
     Active Substance: HYDROXYUREA
     Dosage: UNK

REACTIONS (6)
  - Sickle cell anaemia with crisis [Recovering/Resolving]
  - Eating disorder [Unknown]
  - Abdominal discomfort [Recovered/Resolved]
  - Weight decreased [Unknown]
  - Off label use [Unknown]
  - Product dose omission issue [Unknown]

NARRATIVE: CASE EVENT DATE: 20240810
